FAERS Safety Report 6611298-3 (Version None)
Quarter: 2010Q1

REPORT INFORMATION
  Report Type: 
  Country: None (occurrence: None)
  Receive Date: 20100222
  Receipt Date: 20100215
  Transmission Date: 20100710
  Serious: Yes (Other)
  Sender: FDA-Public Use
  Company Number: 2009SP039138

PATIENT
  Age: 30 Year
  Sex: Female

DRUGS (3)
  1. IMPLANON [Suspect]
     Indication: CONTRACEPTION
     Dosage: 1 DF
     Dates: start: 20080912
  2. IMPLANON [Suspect]
     Indication: CONTRACEPTION
     Dosage: 1 DF
     Dates: start: 20091124
  3. TOPIRAMATE [Suspect]
     Indication: CEREBRAL DISORDER
     Dosage: 25 MG;BID;UNK; 100 MG;BID;UNK
     Dates: start: 20091003

REACTIONS (4)
  - ABORTION SPONTANEOUS [None]
  - DRUG EXPOSURE DURING PREGNANCY [None]
  - DRUG INTERACTION [None]
  - PREGNANCY WITH IMPLANT CONTRACEPTIVE [None]
